FAERS Safety Report 23271774 (Version 1)
Quarter: 2023Q4

REPORT INFORMATION
  Report Type: Spontaneous
  Country: CN (occurrence: CN)
  Receive Date: 20231207
  Receipt Date: 20231207
  Transmission Date: 20240110
  Serious: Yes (Hospitalization, Other)
  Sender: FDA-Public Use
  Company Number: CN-PFIZER INC-PV202300196213

PATIENT
  Age: 76 Year
  Sex: Male
  Weight: 40 kg

DRUGS (2)
  1. ZYVOX [Suspect]
     Active Substance: LINEZOLID
     Indication: Pyrexia
     Dosage: 600 MG, 2X/DAY
     Route: 041
     Dates: start: 20231005, end: 20231007
  2. ZYVOX [Suspect]
     Active Substance: LINEZOLID
     Indication: Septic shock

REACTIONS (2)
  - Gastric haemorrhage [Recovering/Resolving]
  - Platelet count decreased [Recovering/Resolving]

NARRATIVE: CASE EVENT DATE: 20231011
